FAERS Safety Report 12500408 (Version 1)
Quarter: 2016Q2

REPORT INFORMATION
  Report Type: Spontaneous
  Country: US (occurrence: US)
  Receive Date: 20160627
  Receipt Date: 20160627
  Transmission Date: 20160815
  Serious: No
  Sender: FDA-Public Use
  Company Number: US-PFIZER INC-2016315755

PATIENT
  Age: 82 Year
  Sex: Female

DRUGS (1)
  1. LATANOPROST. [Suspect]
     Active Substance: LATANOPROST
     Indication: GLAUCOMA
     Dosage: ONE DROP IN BOTH EYES EVERY EVENING

REACTIONS (4)
  - Eye irritation [Recovered/Resolved]
  - Poor quality drug administered [Unknown]
  - Product deposit [Unknown]
  - Product quality issue [Unknown]

NARRATIVE: CASE EVENT DATE: 20160602
